FAERS Safety Report 19518760 (Version 2)
Quarter: 2021Q3

REPORT INFORMATION
  Report Type: Spontaneous
  Country: US (occurrence: US)
  Receive Date: 20210712
  Receipt Date: 20210716
  Transmission Date: 20211014
  Serious: Yes (Hospitalization, Other)
  Sender: FDA-Public Use
  Company Number: US-TEVA-2021-US-1930278

PATIENT
  Age: 66 Year
  Sex: Female

DRUGS (2)
  1. AJOVY [Suspect]
     Active Substance: FREMANEZUMAB-VFRM
     Route: 065
  2. DEPAKOTE [Suspect]
     Active Substance: DIVALPROEX SODIUM
     Route: 065

REACTIONS (20)
  - Loss of personal independence in daily activities [Unknown]
  - Blood test abnormal [Unknown]
  - Dry skin [Unknown]
  - COVID-19 [Unknown]
  - Body temperature decreased [Unknown]
  - Hyperhidrosis [Unknown]
  - Temperature regulation disorder [Unknown]
  - Multiple sclerosis [Unknown]
  - Gait disturbance [Unknown]
  - Incorrect product administration duration [Unknown]
  - Therapeutic response shortened [Unknown]
  - Lung disorder [Recovering/Resolving]
  - Internal haemorrhage [Unknown]
  - Electrocardiogram abnormal [Unknown]
  - Device difficult to use [Unknown]
  - Freezing phenomenon [Unknown]
  - Illness [Recovered/Resolved]
  - Anxiety [Unknown]
  - Feeling hot [Unknown]
  - Sleep disorder [Unknown]
